FAERS Safety Report 14957746 (Version 3)
Quarter: 2018Q3

REPORT INFORMATION
  Report Type: Spontaneous
  Country: US (occurrence: US)
  Receive Date: 20180531
  Receipt Date: 20180807
  Transmission Date: 20181010
  Serious: Yes (Other)
  Sender: FDA-Public Use
  Company Number: US-SA-2018SA145049

PATIENT
  Age: 60 Year
  Sex: Female
  Weight: 115.33 kg

DRUGS (13)
  1. LOVASTATIN. [Concomitant]
     Active Substance: LOVASTATIN
  2. NEOSAR [Concomitant]
     Active Substance: CYCLOPHOSPHAMIDE
  3. SYNTHROID [Concomitant]
     Active Substance: LEVOTHYROXINE SODIUM
  4. K?DUR [Concomitant]
     Active Substance: POTASSIUM CHLORIDE
  5. CITALOPRAM [Concomitant]
     Active Substance: CITALOPRAM HYDROBROMIDE
  6. IBUPROFEN. [Concomitant]
     Active Substance: IBUPROFEN
  7. TAXOTERE [Suspect]
     Active Substance: DOCETAXEL
     Indication: BREAST CANCER
     Dosage: 70 MG, Q3W
     Route: 042
     Dates: start: 20070118, end: 20070118
  8. TAXOTERE [Suspect]
     Active Substance: DOCETAXEL
     Dosage: 70 MG, Q3W
     Route: 042
     Dates: start: 20070410, end: 20070410
  9. VERAPAMIL [Concomitant]
     Active Substance: VERAPAMIL HYDROCHLORIDE
  10. HYDROCHLOROTHIAZIDE. [Concomitant]
     Active Substance: HYDROCHLOROTHIAZIDE
  11. DOXORUBICIN [Concomitant]
     Active Substance: DOXORUBICIN
  12. AMITRIPTYLINE [Concomitant]
     Active Substance: AMITRIPTYLINE
  13. MOTRIN [Concomitant]
     Active Substance: IBUPROFEN

REACTIONS (2)
  - Psychological trauma [Unknown]
  - Alopecia [Recovering/Resolving]

NARRATIVE: CASE EVENT DATE: 200704
